FAERS Safety Report 13740068 (Version 1)
Quarter: 2017Q3

REPORT INFORMATION
  Report Type: Spontaneous
  Country: US (occurrence: US)
  Receive Date: 20170710
  Receipt Date: 20170710
  Transmission Date: 20171127
  Serious: Yes (Other)
  Sender: FDA-Public Use
  Company Number: None

PATIENT
  Age: 80 Year
  Sex: Female

DRUGS (1)
  1. PROLIA [Suspect]
     Active Substance: DENOSUMAB
     Indication: SENILE OSTEOPOROSIS
     Dosage: OTHER DOSE:MG;OTHER FREQUENCY:Q 6 MONTHS;?
     Route: 058

REACTIONS (3)
  - Arthralgia [None]
  - Sciatica [None]
  - Back pain [None]
